FAERS Safety Report 4888477-9 (Version None)
Quarter: 2005Q4

REPORT INFORMATION
  Report Type: 
  Country: None (occurrence: None)
  Receive Date: 20051221
  Receipt Date: 20051007
  Transmission Date: 20060501
  Serious: No
  Sender: FDA-Public Use
  Company Number: US-YAMANOUCHI-YPA20050519

PATIENT
  Age: 56 Year
  Sex: Female

DRUGS (5)
  1. VESICARE [Suspect]
     Dates: start: 20050601, end: 20050815
  2. HORMONES [Concomitant]
  3. CITRACAL [Concomitant]
  4. DAILY VITAMIN [Concomitant]
  5. GLUCOSAMINE [Concomitant]

REACTIONS (1)
  - VISION BLURRED [None]
